FAERS Safety Report 7830685-9 (Version None)
Quarter: 2011Q4

REPORT INFORMATION
  Report Type: 
  Country: None (occurrence: None)
  Receive Date: 20111021
  Receipt Date: 20111018
  Transmission Date: 20120403
  Serious: Yes (Hospitalization, Other)
  Sender: FDA-Public Use
  Company Number: US-BRISTOL-MYERS SQUIBB COMPANY-13945019

PATIENT
  Age: 53 Year
  Sex: Male
  Weight: 83 kg

DRUGS (1)
  1. CISPLATIN [Suspect]
     Indication: TONSIL CANCER
     Dosage: DELAY FOR 10DAYS
     Dates: start: 20071003, end: 20071003

REACTIONS (3)
  - PAIN [None]
  - VOMITING [None]
  - NAUSEA [None]
